FAERS Safety Report 21544701 (Version 7)
Quarter: 2023Q1

REPORT INFORMATION
  Report Type: Report from Study
  Country: BE (occurrence: BE)
  Receive Date: 20221102
  Receipt Date: 20230221
  Transmission Date: 20230418
  Serious: Yes (Hospitalization, Other)
  Sender: FDA-Public Use
  Company Number: BE-GENMAB-2022-01185

PATIENT
  Age: 54 Year
  Sex: Female
  Weight: 50 kg

DRUGS (43)
  1. TISOTUMAB VEDOTIN [Suspect]
     Active Substance: TISOTUMAB VEDOTIN
     Indication: Cervix cancer metastatic
     Dosage: 2 MILLIGRAM/KILOGRAM, 1Q3W
     Route: 042
     Dates: start: 20221017
  2. PEMBROLIZUMAB [Suspect]
     Active Substance: PEMBROLIZUMAB
     Indication: Cervix cancer metastatic
     Dosage: 200 MILLIGRAM, 1Q3W
     Route: 042
     Dates: start: 20221017
  3. CARBOPLATIN [Suspect]
     Active Substance: CARBOPLATIN
     Indication: Cervix cancer metastatic
     Dosage: 5 AUC, 1Q3W
     Route: 042
     Dates: start: 20221017
  4. ASPIRIN [Concomitant]
     Active Substance: ASPIRIN
     Indication: Thrombosis prophylaxis
     Dosage: 80 MILLIGRAM, QD
     Route: 048
     Dates: start: 20221006
  5. CLOPIDOGREL [Concomitant]
     Active Substance: CLOPIDOGREL BISULFATE
     Indication: Thrombosis prophylaxis
     Dosage: 75 MILLIGRAM, QD
     Route: 048
     Dates: start: 20221006, end: 20221020
  6. ALPRAZOLAM [Concomitant]
     Active Substance: ALPRAZOLAM
     Indication: Anxiety
     Dosage: 0.25 MILLIGRAM, TID
     Route: 048
     Dates: start: 202107
  7. LORMETAZEPAM [Concomitant]
     Active Substance: LORMETAZEPAM
     Indication: Insomnia
     Dosage: 2 MILLIGRAM, QD
     Route: 048
     Dates: start: 202109
  8. ACETAMINOPHEN [Concomitant]
     Active Substance: ACETAMINOPHEN
     Indication: Dysuria
     Dosage: 1000 MILLIGRAM, PRN
     Route: 048
     Dates: start: 202109, end: 20221017
  9. ENOXAPARIN SODIUM [Concomitant]
     Active Substance: ENOXAPARIN SODIUM
     Indication: Thrombosis prophylaxis
     Dosage: 40 MILLIGRAM, QD
     Route: 058
     Dates: start: 20221006, end: 20221016
  10. ENOXAPARIN SODIUM [Concomitant]
     Active Substance: ENOXAPARIN SODIUM
     Dosage: 40 MILLIGRAM, QD
     Route: 058
     Dates: start: 20230103, end: 20230106
  11. ENOXAPARIN SODIUM [Concomitant]
     Active Substance: ENOXAPARIN SODIUM
     Dosage: 20 MILLIGRAM, QD
     Route: 058
     Dates: start: 20230107, end: 20230119
  12. IMODIUM [Concomitant]
     Active Substance: LOPERAMIDE HYDROCHLORIDE
     Indication: Diarrhoea
     Dosage: 2 MILLIGRAM, PRN
     Route: 048
     Dates: start: 20221018, end: 20221022
  13. PANTOPRAZOLE SODIUM [Concomitant]
     Active Substance: PANTOPRAZOLE SODIUM
     Indication: Gastritis prophylaxis
     Dosage: 40 MILLIGRAM, QD
     Route: 042
     Dates: start: 20221024, end: 20221025
  14. PANTOPRAZOLE SODIUM [Concomitant]
     Active Substance: PANTOPRAZOLE SODIUM
     Indication: Gastritis
     Dosage: 20 MILLIGRAM, QD
     Route: 048
     Dates: start: 20221026
  15. PANTOPRAZOLE SODIUM [Concomitant]
     Active Substance: PANTOPRAZOLE SODIUM
     Indication: Prophylaxis of nausea and vomiting
     Dosage: 40 MILLIGRAM, QD
     Route: 042
     Dates: start: 20230102, end: 20230107
  16. PANTOPRAZOLE SODIUM [Concomitant]
     Active Substance: PANTOPRAZOLE SODIUM
     Dosage: 20 MILLIGRAM, QD
     Route: 048
     Dates: start: 20230108
  17. IBUPROFEN [Concomitant]
     Active Substance: IBUPROFEN
     Indication: Injection site pain
     Dosage: 1 SACHET, BID
     Route: 048
     Dates: start: 20221027, end: 20221028
  18. MOVICOL [Concomitant]
     Active Substance: POLYETHYLENE GLYCOL 3350\POTASSIUM CHLORIDE\SODIUM BICARBONATE\SODIUM CHLORIDE
     Indication: Constipation
     Dosage: 1 SACHET, PRN
     Route: 048
     Dates: start: 202209
  19. ALOXI [Concomitant]
     Active Substance: PALONOSETRON HYDROCHLORIDE
     Indication: Premedication
     Dosage: 250 MICROGRAM, QD (BEFORE EVERY IP INFUSION)
     Route: 042
     Dates: start: 20221017
  20. AACIDEXAM [DEXAMETHASONE] [Concomitant]
     Indication: Premedication
     Dosage: 10 MILLIGRAM, BEFORE EVERY IP INFUSION
     Route: 042
     Dates: start: 20221017
  21. MEDROL [Concomitant]
     Active Substance: METHYLPREDNISOLONE
     Indication: Prophylaxis of nausea and vomiting
     Dosage: 32 MILLIGRAM, DAY 2 AND 3 AFTER EVERY IP INFUSION
     Route: 048
     Dates: start: 20221017
  22. INDERAL [Concomitant]
     Active Substance: PROPRANOLOL HYDROCHLORIDE
     Indication: Hyperthyroidism
     Dosage: 10 MILLIGRAM, PRN
     Route: 048
     Dates: start: 20220127
  23. INDERAL [Concomitant]
     Active Substance: PROPRANOLOL HYDROCHLORIDE
     Indication: Palpitations
     Dosage: 10 MILLIGRAM, BID
     Route: 048
     Dates: start: 20221130, end: 20221130
  24. INDERAL [Concomitant]
     Active Substance: PROPRANOLOL HYDROCHLORIDE
     Dosage: 20 MILLIGRAM, TID
     Route: 048
     Dates: start: 20221201, end: 20230101
  25. DAFALGAN [Concomitant]
     Active Substance: ACETAMINOPHEN
     Indication: Headache
     Dosage: 500 MILLIGRAM, PRN
     Route: 048
     Dates: start: 20221114, end: 20221116
  26. AUGMENTIN [Concomitant]
     Active Substance: AMOXICILLIN\CLAVULANATE POTASSIUM
     Indication: Infection prophylaxis
     Dosage: 1 GRAM, SIX TIMES DAILY
     Route: 042
     Dates: start: 20230101, end: 20230108
  27. PIPERACILLIN AND TAZOBACTAM [Concomitant]
     Active Substance: PIPERACILLIN SODIUM\TAZOBACTAM SODIUM
     Indication: Muscle abscess
     Dosage: 4 GRAM, QID
     Route: 042
     Dates: start: 20230108, end: 20230109
  28. VANCOMYCIN [Concomitant]
     Active Substance: VANCOMYCIN
     Indication: Infection prophylaxis
     Dosage: 1 GRAM, QD
     Route: 042
     Dates: start: 20230115, end: 20230115
  29. PREDNISONE [Concomitant]
     Active Substance: PREDNISONE
     Indication: Radiation proctitis
     Dosage: 1 APPLICATION, BID
     Route: 054
     Dates: start: 20230105, end: 20230114
  30. AMINO ACIDS\CARBOHYDRATES\MINERALS\VITAMINS [Concomitant]
     Active Substance: AMINO ACIDS\CARBOHYDRATES\MINERALS\VITAMINS
     Indication: Small intestinal obstruction
     Dosage: 1 UNK, EVERY 24 HOURS
     Route: 042
     Dates: start: 20230103, end: 20230118
  31. CEFTRIAXONE [Concomitant]
     Active Substance: CEFTRIAXONE
     Indication: Muscle abscess
     Dosage: 2 GRAM, QD
     Route: 042
     Dates: start: 20230109, end: 20230120
  32. METRONIDAZOLE [Concomitant]
     Active Substance: METRONIDAZOLE
     Indication: Muscle abscess
     Dosage: 500 MILLIGRAM, TID
     Route: 042
     Dates: start: 20230109, end: 20230120
  33. CASPOFUNGIN [Concomitant]
     Active Substance: CASPOFUNGIN
     Indication: Muscle abscess
     Dosage: 50 MILLIGRAM, QD
     Route: 042
     Dates: start: 20230109, end: 20230206
  34. MOXIFLOXACIN [Concomitant]
     Active Substance: MOXIFLOXACIN
     Indication: Muscle abscess
     Dosage: 400 MILLIGRAM, QD
     Route: 048
     Dates: start: 20230121
  35. ULTRA MAGNESIUM [Concomitant]
     Indication: Hypomagnesaemia
     Dosage: 3 GRAM, QD
     Route: 048
     Dates: start: 20230124
  36. BUTYLSCOPOLAMINE BROMIDE [Concomitant]
     Active Substance: BUTYLSCOPOLAMINE BROMIDE
     Indication: Small intestinal obstruction
     Dosage: 10 MILLIGRAM, PRN
     Route: 048
     Dates: start: 20221222, end: 20221227
  37. PRIMPERAN [Concomitant]
     Active Substance: METOCLOPRAMIDE HYDROCHLORIDE
     Indication: Small intestinal obstruction
     Dosage: 1 TABLESPOON, PRN
     Route: 048
     Dates: start: 20221222, end: 20221227
  38. ALIZAPRIDE HYDROCHLORIDE [Concomitant]
     Active Substance: ALIZAPRIDE HYDROCHLORIDE
     Indication: Small intestinal obstruction
     Dosage: 50 MILLIGRAM, QD
     Route: 030
     Dates: start: 20221228, end: 20221228
  39. CHOLECALCIFEROL [Concomitant]
     Active Substance: CHOLECALCIFEROL
     Indication: Vitamin D deficiency
     Dosage: 25000 INTERNATIONAL UNIT, WEEKLY
     Route: 048
     Dates: start: 20230127
  40. LEVOTHYROXINE SODIUM [Concomitant]
     Active Substance: LEVOTHYROXINE SODIUM
     Indication: Hypothyroidism
     Dosage: 50 MICROGRAM, QD
     Route: 048
     Dates: start: 20230131
  41. CALCIUM CARBONATE\CHOLECALCIFEROL [Concomitant]
     Active Substance: CALCIUM CARBONATE\CHOLECALCIFEROL
     Indication: Osteoporosis prophylaxis
     Dosage: 1000 MILLIGRAM, QD
     Route: 048
     Dates: start: 20220127
  42. VORICONAZOLE [Concomitant]
     Active Substance: VORICONAZOLE
     Indication: Muscle abscess
     Dosage: 300 MILLIGRAM, BID
     Route: 048
     Dates: start: 20230203, end: 20230203
  43. VORICONAZOLE [Concomitant]
     Active Substance: VORICONAZOLE
     Dosage: 200 MILLIGRAM, BID
     Route: 048
     Dates: start: 20230204

REACTIONS (1)
  - Anaemia [Not Recovered/Not Resolved]

NARRATIVE: CASE EVENT DATE: 20221024
